FAERS Safety Report 10147112 (Version 1)
Quarter: 2014Q2

REPORT INFORMATION
  Report Type: Spontaneous
  Country: SE (occurrence: SE)
  Receive Date: 20140501
  Receipt Date: 20140501
  Transmission Date: 20141212
  Serious: Yes (Hospitalization)
  Sender: FDA-Public Use
  Company Number: PHHY2014SE049865

PATIENT
  Age: 74 Year
  Sex: Female

DRUGS (2)
  1. METOPROLOL SANDOZ [Suspect]
  2. METOPROLOL RATIOPHARM//METOPROLOL SUCCINATE [Suspect]

REACTIONS (4)
  - Loss of consciousness [Recovered/Resolved]
  - Ear discomfort [Recovered/Resolved]
  - Headache [Recovered/Resolved]
  - Dizziness [Recovered/Resolved]
